FAERS Safety Report 19126471 (Version 3)
Quarter: 2023Q2

REPORT INFORMATION
  Report Type: Report from Study
  Country: DE (occurrence: DE)
  Receive Date: 20210413
  Receipt Date: 20230517
  Transmission Date: 20230721
  Serious: Yes (Hospitalization)
  Sender: FDA-Public Use
  Company Number: DE-AMGEN-DEUNI2021055085

PATIENT
  Age: 84 Year
  Sex: Female
  Weight: 64 kg

DRUGS (5)
  1. PANITUMUMAB [Suspect]
     Active Substance: PANITUMUMAB
     Indication: Colorectal cancer metastatic
     Dosage: 384 MILLIGRAM
     Route: 042
     Dates: start: 20201126
  2. LEUCOVORIN [Suspect]
     Active Substance: LEUCOVORIN
     Indication: Colorectal cancer metastatic
     Dosage: 694 MILLIGRAM
     Route: 065
     Dates: start: 20201110
  3. FLUOROURACIL [Suspect]
     Active Substance: FLUOROURACIL
     Indication: Colorectal cancer metastatic
     Dosage: 694 MILLIGRAM
     Route: 040
     Dates: start: 20201110
  4. FLUOROURACIL [Suspect]
     Active Substance: FLUOROURACIL
     Dosage: 4160 MILLIGRAM
     Route: 042
     Dates: start: 20201110
  5. IRINOTECAN [Suspect]
     Active Substance: IRINOTECAN
     Indication: Colorectal cancer metastatic
     Dosage: 312 MILLIGRAM
     Route: 065
     Dates: start: 20201110

REACTIONS (2)
  - Superinfection bacterial [Recovered/Resolved]
  - Rash [Recovered/Resolved]

NARRATIVE: CASE EVENT DATE: 20201210
